FAERS Safety Report 9336721 (Version 2)
Quarter: 2013Q3

REPORT INFORMATION
  Report Type: Spontaneous
  Country: DK (occurrence: DK)
  Receive Date: 20130607
  Receipt Date: 20130709
  Transmission Date: 20140515
  Serious: Yes (Death, Other)
  Sender: FDA-Public Use
  Company Number: DK-OTSUKA-EU-2013-10138

PATIENT
  Age: 69 Year
  Sex: Male
  Weight: 87 kg

DRUGS (1)
  1. SAMSCA [Suspect]
     Indication: HYPONATRAEMIA
     Dosage: DOSIS: 1 X 2 , STYRKE: 15 MG
     Route: 048
     Dates: start: 20130512, end: 20130515

REACTIONS (1)
  - Sudden death [Fatal]
